FAERS Safety Report 9889612 (Version 1)
Quarter: 2014Q1

REPORT INFORMATION
  Report Type: Spontaneous
  Country: GB (occurrence: GB)
  Receive Date: 20140211
  Receipt Date: 20140211
  Transmission Date: 20141002
  Serious: Yes (Other)
  Sender: FDA-Public Use
  Company Number: PHHY2014GB013020

PATIENT
  Age: 71 Year
  Sex: Male
  Weight: 79 kg

DRUGS (7)
  1. ATORVASTATIN [Suspect]
     Indication: MYOCARDIAL ISCHAEMIA
     Dosage: 40 MG
     Route: 048
     Dates: start: 20120414, end: 20140110
  2. GLUCOSAMINE SULPHATE [Interacting]
     Indication: OSTEOARTHRITIS
     Dosage: 1500 MG
     Route: 048
     Dates: start: 20140110, end: 20140120
  3. CHONDROITIN SULFATE [Interacting]
     Indication: OSTEOARTHRITIS
     Dosage: 800 MG
     Route: 048
     Dates: start: 20140110, end: 20140120
  4. ASPIRIN [Concomitant]
  5. ALLOPURINOL [Concomitant]
  6. RAMIPRIL [Concomitant]
  7. BISOPROLOL [Concomitant]

REACTIONS (3)
  - Myalgia [Recovered/Resolved]
  - Back pain [Recovered/Resolved]
  - Drug interaction [Unknown]
